FAERS Safety Report 19980950 (Version 1)
Quarter: 2021Q4

REPORT INFORMATION
  Report Type: Spontaneous
  Country: IT (occurrence: IT)
  Receive Date: 20211021
  Receipt Date: 20211021
  Transmission Date: 20220303
  Serious: Yes (Other)
  Sender: FDA-Public Use
  Company Number: IT-JNJFOC-20211001438

PATIENT
  Age: 27 Year
  Sex: Female
  Weight: 55 kg

DRUGS (6)
  1. XANAX [Suspect]
     Active Substance: ALPRAZOLAM
     Dosage: 1 MG (3 TABLETS)
     Route: 065
  2. ZOLPIDEM TARTRATE [Suspect]
     Active Substance: ZOLPIDEM TARTRATE
     Dosage: 10 MG (3 TABLETS)
     Route: 065
  3. TALOFEN [Suspect]
     Active Substance: PROMAZINE HYDROCHLORIDE
     Dosage: 30 ML 4%, 1 BOTTLE
     Route: 065
  4. HALDOL [Suspect]
     Active Substance: HALOPERIDOL
     Dosage: 30 ML BOTTLE SOLUTION
     Route: 048
  5. VALIUM [Suspect]
     Active Substance: DIAZEPAM
     Dosage: 20 ML 0.5%, 1 BOTTLE
     Route: 065
  6. RIVOTRIL [Suspect]
     Active Substance: CLONAZEPAM
     Dosage: 10 ML 0.25%, 1 BOTTLE
     Route: 065

REACTIONS (3)
  - Intentional product misuse [Unknown]
  - Intentional self-injury [Unknown]
  - Nausea [Unknown]
